FAERS Safety Report 17252072 (Version 1)
Quarter: 2020Q1

REPORT INFORMATION
  Report Type: Spontaneous
  Country: CN (occurrence: CN)
  Receive Date: 20200109
  Receipt Date: 20200109
  Transmission Date: 20200409
  Serious: Yes (Death)
  Sender: FDA-Public Use
  Company Number: CN-PFIZER INC-2020002082

PATIENT
  Age: 25 Year
  Sex: Female

DRUGS (5)
  1. FOSFOMYCIN [Suspect]
     Active Substance: FOSFOMYCIN
     Indication: SEPSIS
     Dosage: UNK
  2. TIENAM [Suspect]
     Active Substance: CILASTATIN SODIUM\IMIPENEM
     Indication: SEPSIS
     Dosage: UNK (DOUBLED-DOSE)
  3. TIGECYCLINE. [Suspect]
     Active Substance: TIGECYCLINE
     Indication: ENTEROBACTER INFECTION
     Dosage: UNK (HIGHER DOSE)
  4. POLYMYXIN B. [Suspect]
     Active Substance: POLYMYXIN B
     Indication: SEPSIS
     Dosage: UNK
  5. TIGECYCLINE. [Suspect]
     Active Substance: TIGECYCLINE
     Indication: SEPSIS
     Dosage: UNK

REACTIONS (1)
  - Drug ineffective [Fatal]
